FAERS Safety Report 17392755 (Version 1)
Quarter: 2020Q1

REPORT INFORMATION
  Report Type: Spontaneous
  Country: US (occurrence: US)
  Receive Date: 20200207
  Receipt Date: 20200207
  Transmission Date: 20200409
  Serious: No
  Sender: FDA-Public Use
  Company Number: US-MYLANLABS-2020M1011841

PATIENT
  Age: 64 Year
  Sex: Female

DRUGS (2)
  1. ESTRADIOL TABLETS, USP [Suspect]
     Active Substance: ESTRADIOL
     Indication: MENOPAUSE
     Dosage: 1.5 MILLIGRAM, QD
     Route: 048
     Dates: start: 20200107
  2. LEVOTHYROXINE SODIUM TABLETS, USP [Suspect]
     Active Substance: LEVOTHYROXINE SODIUM
     Indication: THYROID HORMONE REPLACEMENT THERAPY
     Dosage: UNK
     Route: 048
     Dates: end: 20200126

REACTIONS (5)
  - Night sweats [Not Recovered/Not Resolved]
  - Aggression [Not Recovered/Not Resolved]
  - Pruritus [Not Recovered/Not Resolved]
  - Thyroid hormones decreased [Recovered/Resolved]
  - Drug ineffective [Not Recovered/Not Resolved]
